FAERS Safety Report 12059820 (Version 1)
Quarter: 2016Q1

REPORT INFORMATION
  Report Type: Report from Study
  Country: FR (occurrence: FR)
  Receive Date: 20160210
  Receipt Date: 20160210
  Transmission Date: 20160526
  Serious: Yes (Hospitalization, Other)
  Sender: FDA-Public Use
  Company Number: FR-BRISTOL-MYERS SQUIBB COMPANY-BMS-2016-001484

PATIENT
  Age: 54 Year
  Sex: Male
  Weight: 63 kg

DRUGS (10)
  1. KARDEGIC [Suspect]
     Active Substance: ASPIRIN LYSINE
     Indication: ANTICOAGULANT THERAPY
     Dosage: 75 MG, QD
     Route: 065
  2. NOVONORM [Suspect]
     Active Substance: REPAGLINIDE
     Indication: DIABETES MELLITUS
     Dosage: 1 MG, TID
     Route: 065
     Dates: start: 2002
  3. UMULINE [Concomitant]
     Active Substance: INSULIN HUMAN
     Indication: DIABETES MELLITUS
     Dosage: 14 IU, QD
     Route: 065
     Dates: start: 2015
  4. INEXIUM                            /01479302/ [Concomitant]
     Active Substance: ESOMEPRAZOLE MAGNESIUM
     Indication: GASTROINTESTINAL DISORDER
     Dosage: 20 MG, QD
     Route: 065
     Dates: start: 2015
  5. SOVALDI [Suspect]
     Active Substance: SOFOSBUVIR
     Indication: HEPATITIS C
     Dosage: 400 MG, QD
     Route: 065
     Dates: start: 20141120, end: 20150228
  6. CORDARONE [Concomitant]
     Active Substance: AMIODARONE HYDROCHLORIDE
     Indication: TACHYCARDIA
     Dosage: 200 MG, QD
     Route: 065
     Dates: start: 201506
  7. DIPROSONE                          /00008502/ [Concomitant]
     Active Substance: BETAMETHASONE SODIUM PHOSPHATE
     Indication: PRODUCT USED FOR UNKNOWN INDICATION
     Dosage: UNK
     Route: 061
     Dates: start: 2015
  8. AMLOR [Suspect]
     Active Substance: AMLODIPINE BESYLATE
     Indication: HYPERTENSION
     Dosage: 10 MG, QD
     Route: 065
     Dates: start: 2012
  9. DACLATASVIR DIHYDROCHLORIDE [Suspect]
     Active Substance: DACLATASVIR DIHYDROCHLORIDE
     Indication: HEPATITIS C
     Dosage: 60 MG, QD
     Route: 065
     Dates: start: 20141120, end: 20150218
  10. TAHOR [Suspect]
     Active Substance: ATORVASTATIN CALCIUM
     Indication: LIPID METABOLISM DISORDER
     Dosage: 10 MG, QD
     Route: 065
     Dates: start: 2012

REACTIONS (4)
  - Pericardial effusion [Unknown]
  - Vasoplegia syndrome [Unknown]
  - Coronary artery disease [Recovering/Resolving]
  - Renal failure [Unknown]

NARRATIVE: CASE EVENT DATE: 20141109
